FAERS Safety Report 10176770 (Version 1)
Quarter: 2014Q2

REPORT INFORMATION
  Report Type: Spontaneous
  Country: US (occurrence: None)
  Receive Date: 20140515
  Receipt Date: 20140515
  Transmission Date: 20141212
  Serious: Yes (Life-Threatening, Hospitalization)
  Sender: FDA-Public Use
  Company Number: None

PATIENT
  Age: 66 Year
  Sex: Male
  Weight: 75.6 kg

DRUGS (1)
  1. OXALIPLATIN [Suspect]

REACTIONS (6)
  - Fatigue [None]
  - Cough [None]
  - Dyspnoea [None]
  - Hypoxia [None]
  - Pleural fibrosis [None]
  - Pneumonitis [None]
